FAERS Safety Report 16381378 (Version 2)
Quarter: 2020Q2

REPORT INFORMATION
  Report Type: Spontaneous
  Country: US (occurrence: US)
  Receive Date: 20190603
  Receipt Date: 20200514
  Transmission Date: 20200713
  Serious: Yes (Other)
  Sender: FDA-Public Use
  Company Number: US-SUN PHARMACEUTICAL INDUSTRIES LTD-2019R1-209350

PATIENT
  Age: 56 Year
  Sex: Male

DRUGS (4)
  1. METHYLNALTREXONE [Suspect]
     Active Substance: METHYLNALTREXONE
     Indication: PAIN
     Dosage: 12 MILLIGRAM
     Route: 058
  2. HYDROMORPHONE [Suspect]
     Active Substance: HYDROMORPHONE
     Indication: PAIN
     Dosage: UNK
     Route: 042
  3. METHADONE [Suspect]
     Active Substance: METHADONE HYDROCHLORIDE
     Indication: PAIN
     Dosage: 5 MILLIGRAM, TID
     Route: 048
  4. OXYCODONE [Suspect]
     Active Substance: OXYCODONE
     Indication: PAIN
     Dosage: 10 MILLIGRAM, PRN (EVERY 4 HOURS)
     Route: 048

REACTIONS (4)
  - Intestinal pseudo-obstruction [Unknown]
  - Drug dependence [Unknown]
  - Large intestine perforation [Unknown]
  - Constipation [Unknown]
